FAERS Safety Report 4954054-4 (Version None)
Quarter: 2006Q1

REPORT INFORMATION
  Report Type: 
  Country: None (occurrence: None)
  Receive Date: 20060321
  Receipt Date: 20060309
  Transmission Date: 20060701
  Serious: Yes (Hospitalization)
  Sender: FDA-Public Use
  Company Number: 2006-139626-NL

PATIENT
  Age: 31 Year
  Sex: Female

DRUGS (2)
  1. MENOTROPINS [Suspect]
     Indication: INFERTILITY FEMALE
     Dosage: DF
     Dates: start: 20041026
  2. CHORIONIC GONADOTROPIN [Suspect]
     Indication: INFERTILITY FEMALE
     Dosage: DF
     Dates: start: 20041026

REACTIONS (9)
  - ACUTE ABDOMEN [None]
  - ASCITES [None]
  - DRUG EXPOSURE BEFORE PREGNANCY [None]
  - ECTOPIC PREGNANCY [None]
  - INTRA-UTERINE DEATH [None]
  - LABORATORY TEST ABNORMAL [None]
  - OVARIAN HYPERSTIMULATION SYNDROME [None]
  - PLEURAL EFFUSION [None]
  - PREGNANCY [None]
